FAERS Safety Report 6214898-8 (Version None)
Quarter: 2009Q2

REPORT INFORMATION
  Report Type: 
  Country: None (occurrence: None)
  Receive Date: 20090604
  Receipt Date: 20090206
  Transmission Date: 20091009
  Serious: No
  Sender: FDA-Public Use
  Company Number: US-BAYER-200913625NA

PATIENT
  Age: 72 Year
  Sex: Female
  Weight: 56 kg

DRUGS (7)
  1. ULTRAVIST 370 [Suspect]
     Indication: COMPUTERISED TOMOGRAM ABDOMEN
     Dosage: TOTAL DAILY DOSE: 50 ML  UNIT DOSE: 100 ML
     Route: 042
     Dates: start: 20090206, end: 20090206
  2. XALATAN [Concomitant]
  3. BETIMOL [Concomitant]
  4. VITAMIN B-12 [Concomitant]
  5. HYZAAR [Concomitant]
  6. ALLEGRA [Concomitant]
  7. CENTRUM [Concomitant]

REACTIONS (2)
  - PRURITUS [None]
  - URTICARIA [None]
